FAERS Safety Report 20810460 (Version 1)
Quarter: 2022Q2

REPORT INFORMATION
  Report Type: Spontaneous
  Country: US (occurrence: US)
  Receive Date: 20220510
  Receipt Date: 20220510
  Transmission Date: 20220720
  Serious: No
  Sender: FDA-Public Use
  Company Number: US-GLAUKOS-AVE-2021-0253-AE

PATIENT

DRUGS (2)
  1. RIBOFLAVIN 5^-PHOSPHATE SODIUM [Suspect]
     Active Substance: RIBOFLAVIN 5^-PHOSPHATE SODIUM
     Indication: Keratoconus
     Route: 047
     Dates: start: 2015, end: 2015
  2. RIBOFLAVIN 5^-PHOSPHATE SODIUM [Suspect]
     Active Substance: RIBOFLAVIN 5^-PHOSPHATE SODIUM
     Indication: Keratoconus
     Route: 047
     Dates: start: 2017, end: 2017

REACTIONS (5)
  - Lacrimation increased [Unknown]
  - Lacrimation increased [Unknown]
  - Eye pain [Unknown]
  - Eye pain [Unknown]
  - Disease progression [Unknown]

NARRATIVE: CASE EVENT DATE: 20150101
